FAERS Safety Report 6429999-9 (Version None)
Quarter: 2009Q4

REPORT INFORMATION
  Report Type: 
  Country: None (occurrence: None)
  Receive Date: 20091106
  Receipt Date: 20091027
  Transmission Date: 20100525
  Serious: Yes (Other)
  Sender: FDA-Public Use
  Company Number: US-WYE-H11864309

PATIENT
  Age: 75 Year
  Sex: Male

DRUGS (3)
  1. PRISTIQ [Suspect]
     Indication: DEPRESSION
     Route: 048
     Dates: start: 20091009
  2. METHYLPHENIDATE HCL [Concomitant]
     Dosage: 5 MG
  3. OXYBUTYNIN [Concomitant]
     Indication: BLADDER DISORDER
     Dosage: UNKNOWN

REACTIONS (3)
  - BLINDNESS [None]
  - CEREBROVASCULAR ACCIDENT [None]
  - FATIGUE [None]
